FAERS Safety Report 5930973-7 (Version None)
Quarter: 2008Q4

REPORT INFORMATION
  Report Type: 
  Country: None (occurrence: None)
  Receive Date: 20081022
  Receipt Date: 20081007
  Transmission Date: 20090506
  Serious: Yes (Other)
  Sender: FDA-Public Use
  Company Number: 2008S1018322

PATIENT
  Age: 21 Year
  Sex: Male

DRUGS (2)
  1. AZATHIOPRINE [Suspect]
     Indication: DRUG USE FOR UNKNOWN INDICATION
  2. CYCLOPHOSPHAMIDE [Concomitant]

REACTIONS (4)
  - HYPOGAMMAGLOBULINAEMIA [None]
  - NEPHROTIC SYNDROME [None]
  - PROTEINURIA [None]
  - TRANSAMINASES INCREASED [None]
